FAERS Safety Report 17408967 (Version 1)
Quarter: 2020Q1

REPORT INFORMATION
  Report Type: Spontaneous
  Country: GB (occurrence: GB)
  Receive Date: 20200212
  Receipt Date: 20200212
  Transmission Date: 20200409
  Serious: Yes (Other)
  Sender: FDA-Public Use
  Company Number: GB-MYLANLABS-2020M1015312

PATIENT
  Age: 4 Year
  Sex: Male

DRUGS (1)
  1. MONTELUKAST [Suspect]
     Active Substance: MONTELUKAST SODIUM
     Indication: ASTHMA
     Dosage: UNK
     Route: 065

REACTIONS (5)
  - Psychomotor hyperactivity [Unknown]
  - Sleep terror [Recovered/Resolved with Sequelae]
  - Aggression [Unknown]
  - Anxiety [Unknown]
  - Night sweats [Unknown]
